FAERS Safety Report 8064747-0 (Version None)
Quarter: 2012Q1

REPORT INFORMATION
  Report Type: 
  Country: None (occurrence: None)
  Receive Date: 20120124
  Receipt Date: 20120111
  Transmission Date: 20120608
  Serious: Yes (Other)
  Sender: FDA-Public Use
  Company Number: US-AMGEN-USASP2012002456

PATIENT
  Age: 73 Year
  Sex: Female

DRUGS (1)
  1. ENBREL [Suspect]
     Indication: RHEUMATOID ARTHRITIS
     Dosage: 50 MG, QWK
     Dates: start: 20091130, end: 20111223

REACTIONS (12)
  - MUSCULAR WEAKNESS [None]
  - GAIT DISTURBANCE [None]
  - LUMBAR SPINAL STENOSIS [None]
  - PYREXIA [None]
  - CHILLS [None]
  - HYPOAESTHESIA [None]
  - COUGH [None]
  - NASOPHARYNGITIS [None]
  - RHINORRHOEA [None]
  - ASTHENIA [None]
  - CHEST DISCOMFORT [None]
  - OROPHARYNGEAL PAIN [None]
